FAERS Safety Report 8516574-5 (Version None)
Quarter: 2012Q3

REPORT INFORMATION
  Report Type: 
  Country: None (occurrence: None)
  Receive Date: 20120711
  Receipt Date: 20120711
  Transmission Date: 20120928
  Serious: Yes (Other)
  Sender: FDA-Public Use
  Company Number: None

PATIENT
  Sex: Female

DRUGS (3)
  1. LOPRESSOR [Concomitant]
  2. LENOXIN [Concomitant]
  3. XARELTO [Suspect]
     Indication: ANTICOAGULANT THERAPY
     Dosage: 20MG ONCE A DAY PO
     Route: 048

REACTIONS (3)
  - RASH [None]
  - HEADACHE [None]
  - MELAENA [None]
